FAERS Safety Report 7207195-5 (Version None)
Quarter: 2011Q1

REPORT INFORMATION
  Report Type: 
  Country: None (occurrence: None)
  Receive Date: 20110103
  Receipt Date: 20101222
  Transmission Date: 20110831
  Serious: Yes (Death)
  Sender: FDA-Public Use
  Company Number: CO-ROCHE-747264

PATIENT
  Sex: Female

DRUGS (1)
  1. XELODA [Suspect]
     Indication: GASTRIC CANCER
     Dosage: FREQUENCY: QD
     Route: 048
     Dates: start: 20101008, end: 20101211

REACTIONS (3)
  - VOMITING [None]
  - NEOPLASM MALIGNANT [None]
  - DIARRHOEA [None]
